FAERS Safety Report 5668732-5 (Version None)
Quarter: 2008Q1

REPORT INFORMATION
  Report Type: 
  Country: None (occurrence: None)
  Receive Date: 20080312
  Receipt Date: 20080312
  Transmission Date: 20080703
  Serious: Yes (Hospitalization)
  Sender: FDA-Public Use
  Company Number: None

PATIENT
  Sex: Female
  Weight: 53.2 kg

DRUGS (6)
  1. DAUNORUBICIN HCL [Suspect]
     Dosage: 80 MG
  2. METHOTREXATE [Suspect]
     Dosage: 15 MG
  3. PEG-L-ASPARAGINASE (K-H) [Concomitant]
     Dosage: 1875 IU
  4. PREDNISONE TAB [Suspect]
     Dosage: 1125 MG
  5. VINCRISTINE SULFATE [Suspect]
     Dosage: 2 MG
  6. CYTARABINE [Suspect]
     Dosage: 70 MG

REACTIONS (4)
  - ABDOMINAL PAIN [None]
  - NEUTROPENIA [None]
  - PERITONITIS [None]
  - SMALL INTESTINAL PERFORATION [None]
